FAERS Safety Report 9159674 (Version 4)
Quarter: 2013Q2

REPORT INFORMATION
  Report Type: Report from Study
  Country: BR (occurrence: BR)
  Receive Date: 20130313
  Receipt Date: 20130616
  Transmission Date: 20140414
  Serious: Yes (Other)
  Sender: FDA-Public Use
  Company Number: BR-US-EMD SERONO, INC.-7198146

PATIENT
  Age: 51 Year
  Sex: Female

DRUGS (2)
  1. REBIF [Suspect]
     Indication: MULTIPLE SCLEROSIS
     Dates: start: 20130214
  2. PARACETAMOL [Concomitant]
     Indication: PRODUCT USED FOR UNKNOWN INDICATION

REACTIONS (7)
  - Apparent life threatening event [Recovering/Resolving]
  - Decreased appetite [Not Recovered/Not Resolved]
  - Dizziness [Recovering/Resolving]
  - Gait disturbance [Recovering/Resolving]
  - Pain in extremity [Not Recovered/Not Resolved]
  - Influenza like illness [Recovering/Resolving]
  - Arthralgia [Unknown]
